FAERS Safety Report 15505012 (Version 1)
Quarter: 2018Q4

REPORT INFORMATION
  Report Type: Spontaneous
  Country: US (occurrence: US)
  Receive Date: 20181016
  Receipt Date: 20181016
  Transmission Date: 20190205
  Serious: No
  Sender: FDA-Public Use
  Company Number: US-SA-2018SA283560

PATIENT
  Age: 21 Year
  Sex: Male
  Weight: 52.61 kg

DRUGS (11)
  1. NORMAL SALINE [Concomitant]
     Active Substance: SODIUM CHLORIDE
     Indication: FLUSHING
     Dosage: 0.9 % AS DIRECTED
     Route: 042
     Dates: start: 20180521
  2. ALDURAZYME [Suspect]
     Active Substance: LARONIDASE
     Indication: MUCOPOLYSACCHARIDOSIS
     Dosage: 29 MG, QW
     Route: 041
     Dates: start: 20030731
  3. SODIUM CHLORIDE. [Concomitant]
     Active Substance: SODIUM CHLORIDE
     Indication: FLUSHING
     Dosage: 0.9 % AS DIRECTED
     Route: 042
     Dates: start: 20180914
  4. EPINEPHRINE. [Concomitant]
     Active Substance: EPINEPHRINE
     Indication: ANAPHYLACTIC REACTION
     Dosage: 0.3 MG, PRN
     Dates: start: 20180521
  5. XALATAN [Concomitant]
     Active Substance: LATANOPROST
     Dosage: 1 DROP IN BOTH EYES AT BED TIME
     Dates: start: 20180418
  6. HEPARIN [Concomitant]
     Active Substance: HEPARIN SODIUM
     Indication: FLUSHING
     Dosage: 100 UN/ML AS DIRECTED
     Route: 042
     Dates: start: 20180521
  7. ACETAMINOPHEN. [Concomitant]
     Active Substance: ACETAMINOPHEN
     Dosage: 500 MG, AS DIRECTED
     Route: 048
  8. LMX [LIDOCAINE] [Concomitant]
     Indication: PREMEDICATION
     Dosage: , PRIOR TO INFUSION
     Route: 061
     Dates: start: 20180521
  9. DIPHENHYDRAMINE. [Concomitant]
     Active Substance: DIPHENHYDRAMINE
     Indication: ANAPHYLACTIC REACTION
  10. DIPHENHYDRAMINE. [Concomitant]
     Active Substance: DIPHENHYDRAMINE
     Indication: PREMEDICATION
     Dosage: 25 MG, PRIOR TO INFUSION AS NEEDED
     Dates: start: 20180521
  11. ZOFRAN [ONDANSETRON HYDROCHLORIDE] [Concomitant]
     Indication: PREMEDICATION
     Dosage: 4 MG, PRIOR TO INFUSION
     Route: 048
     Dates: start: 20180521

REACTIONS (3)
  - Rhinorrhoea [Unknown]
  - Cough [Unknown]
  - Pyrexia [Unknown]
